FAERS Safety Report 7925481-8 (Version None)
Quarter: 2011Q4

REPORT INFORMATION
  Report Type: 
  Country: None (occurrence: None)
  Receive Date: 20111118
  Receipt Date: 20110407
  Transmission Date: 20120403
  Serious: No
  Sender: FDA-Public Use
  Company Number: US-AMGEN-USASP2011018486

PATIENT
  Age: 60 Year
  Sex: Male

DRUGS (3)
  1. ARAVA [Concomitant]
     Dosage: 1 MG, QD
     Dates: start: 20090101
  2. AZULFIDINE [Concomitant]
     Dosage: 2 MG, QD
     Dates: start: 20090101
  3. ENBREL [Suspect]
     Indication: RHEUMATOID ARTHRITIS
     Dosage: UNK
     Dates: start: 20110330

REACTIONS (1)
  - TUBERCULIN TEST POSITIVE [None]
